FAERS Safety Report 23036193 (Version 1)
Quarter: 2023Q4

REPORT INFORMATION
  Report Type: Spontaneous
  Country: US (occurrence: US)
  Receive Date: 20231006
  Receipt Date: 20231006
  Transmission Date: 20240109
  Serious: No
  Sender: FDA-Public Use
  Company Number: US-EYEPOINT PHARMACEUTICALS, INC.-US-EYP-22-00249

PATIENT

DRUGS (1)
  1. DEXYCU [Suspect]
     Active Substance: DEXAMETHASONE
     Indication: Cataract operation
     Dosage: ADMINISTERED TO BOTH EYES/OU; ADVERSE EVENTS EXPERIENCED WITH LEFT EYE/OS ONLY
     Route: 031
     Dates: start: 202111, end: 202111

REACTIONS (3)
  - Vitreous floaters [Unknown]
  - Device dislocation [Unknown]
  - Product residue present [Unknown]
